FAERS Safety Report 5337365-2 (Version None)
Quarter: 2007Q2

REPORT INFORMATION
  Report Type: 
  Country: None (occurrence: None)
  Receive Date: 20070529
  Receipt Date: 20070511
  Transmission Date: 20071010
  Serious: Yes (Death, Other)
  Sender: FDA-Public Use
  Company Number: US-SHR-US-2007-006380

PATIENT
  Age: 75 Year
  Sex: Male
  Weight: 91 kg

DRUGS (22)
  1. MAGNEVIST [Suspect]
     Indication: NUCLEAR MAGNETIC RESONANCE IMAGING BRAIN
     Dosage: 20 ML, 1 DOSE
     Route: 042
     Dates: start: 20021007, end: 20021007
  2. MAGNEVIST [Suspect]
     Dosage: 20 ML, 1 DOSE
     Route: 042
     Dates: start: 20021022, end: 20021022
  3. MAGNEVIST [Suspect]
     Dosage: 20 ML, 1 DOSE
     Route: 042
     Dates: start: 20030927, end: 20030927
  4. COUMADIN [Concomitant]
  5. FRAGMIN [Concomitant]
  6. RENAGEL [Concomitant]
  7. EPOGEN [Concomitant]
  8. ZEMPLAR [Concomitant]
  9. ARANESP [Concomitant]
  10. PERCOCET [Concomitant]
  11. VITAMIN E [Concomitant]
  12. NEURONTIN [Concomitant]
  13. ALLOPURINOL [Concomitant]
  14. SINEMET [Concomitant]
  15. VITAMINE C [Concomitant]
  16. NEPHROCAPS [Concomitant]
  17. SIMVASTATIN [Concomitant]
  18. NEXIUM [Concomitant]
  19. ZYDIS [Concomitant]
  20. CELEXA [Concomitant]
  21. ASPIRIN [Concomitant]
  22. SEROQUEL [Concomitant]

REACTIONS (2)
  - MYOCARDIAL INFARCTION [None]
  - NEPHROGENIC FIBROSING DERMOPATHY [None]
